FAERS Safety Report 8112551-7 (Version None)
Quarter: 2012Q1

REPORT INFORMATION
  Report Type: 
  Country: None (occurrence: None)
  Receive Date: 20120203
  Receipt Date: 20120125
  Transmission Date: 20120608
  Serious: Yes (Other)
  Sender: FDA-Public Use
  Company Number: RU-ROCHE-1033445

PATIENT
  Age: 60 Year
  Sex: Female

DRUGS (3)
  1. BONIVA [Suspect]
     Indication: OSTEOPOROSIS
     Route: 048
     Dates: start: 20110601
  2. BONIVA [Suspect]
     Route: 042
     Dates: start: 20110701
  3. BONIVA [Suspect]
     Route: 042
     Dates: start: 20120116

REACTIONS (4)
  - GASTRITIS [None]
  - NAUSEA [None]
  - HYPOTENSION [None]
  - ASTHENIA [None]
